FAERS Safety Report 5143232-X (Version None)
Quarter: 2006Q4

REPORT INFORMATION
  Report Type: 
  Country: None (occurrence: None)
  Receive Date: 20061103
  Receipt Date: 20061025
  Transmission Date: 20070319
  Serious: Yes (Death)
  Sender: FDA-Public Use
  Company Number: US-JNJFOC-20061005922

PATIENT
  Sex: Male
  Weight: 92.99 kg

DRUGS (27)
  1. INFLIXIMAB [Suspect]
     Route: 042
  2. INFLIXIMAB [Suspect]
     Route: 042
  3. INFLIXIMAB [Suspect]
     Route: 042
  4. INFLIXIMAB [Suspect]
     Route: 042
  5. INFLIXIMAB [Suspect]
     Route: 042
  6. INFLIXIMAB [Suspect]
     Route: 042
  7. INFLIXIMAB [Suspect]
     Route: 042
  8. INFLIXIMAB [Suspect]
     Route: 042
  9. INFLIXIMAB [Suspect]
     Route: 042
  10. INFLIXIMAB [Suspect]
     Route: 042
  11. INFLIXIMAB [Suspect]
     Route: 042
  12. INFLIXIMAB [Suspect]
     Route: 042
  13. INFLIXIMAB [Suspect]
     Route: 042
  14. INFLIXIMAB [Suspect]
     Route: 042
  15. INFLIXIMAB [Suspect]
     Route: 042
  16. INFLIXIMAB [Suspect]
     Route: 042
  17. INFLIXIMAB [Suspect]
     Route: 042
  18. INFLIXIMAB [Suspect]
     Route: 042
  19. INFLIXIMAB [Suspect]
     Route: 042
  20. INFLIXIMAB [Suspect]
     Route: 042
  21. INFLIXIMAB [Suspect]
     Route: 042
  22. INFLIXIMAB [Suspect]
     Indication: CROHN'S DISEASE
     Route: 042
  23. MESALAMINE [Concomitant]
     Indication: CROHN'S DISEASE
  24. BUDESONIDE [Concomitant]
     Indication: CROHN'S DISEASE
  25. PREDNISONE TAB [Concomitant]
     Indication: CROHN'S DISEASE
  26. ACETAMINOPHEN [Concomitant]
     Indication: PREMEDICATION
  27. ANTIHISTAMINES [Concomitant]
     Indication: PREMEDICATION

REACTIONS (1)
  - LUNG ADENOCARCINOMA [None]
